FAERS Safety Report 11454494 (Version 1)
Quarter: 2015Q3

REPORT INFORMATION
  Report Type: Spontaneous
  Country: US (occurrence: US)
  Receive Date: 20150831
  Receipt Date: 20150831
  Transmission Date: 20151125
  Serious: No
  Sender: FDA-Public Use
  Company Number: US-ELI_LILLY_AND_COMPANY-US201004002381

PATIENT
  Age: 76 Year
  Sex: Male

DRUGS (5)
  1. ISOSORBIDE DINITRATE. [Concomitant]
     Active Substance: ISOSORBIDE DINITRATE
  2. SPIRIVA [Concomitant]
     Active Substance: TIOTROPIUM BROMIDE MONOHYDRATE
  3. CYMBALTA [Suspect]
     Active Substance: DULOXETINE HYDROCHLORIDE
     Dosage: 60 MG, DAILY (1/D)
     Route: 048
     Dates: start: 20100311
  4. PRILOSEC [Concomitant]
     Active Substance: OMEPRAZOLE MAGNESIUM
  5. CYMBALTA [Suspect]
     Active Substance: DULOXETINE HYDROCHLORIDE
     Indication: DIABETIC NEUROPATHY
     Dosage: 30 MG, DAILY (1/D)
     Route: 048
     Dates: start: 20100218, end: 20100310

REACTIONS (6)
  - Heart rate irregular [Unknown]
  - Dyspnoea [Unknown]
  - Malaise [Unknown]
  - Dizziness [Unknown]
  - Blood pressure systolic decreased [Recovered/Resolved]
  - Feeling abnormal [Recovered/Resolved]

NARRATIVE: CASE EVENT DATE: 2010
